FAERS Safety Report 5396422-5 (Version None)
Quarter: 2007Q3

REPORT INFORMATION
  Report Type: 
  Country: None (occurrence: None)
  Receive Date: 20070725
  Receipt Date: 20070717
  Transmission Date: 20080115
  Serious: Yes (Hospitalization)
  Sender: FDA-Public Use
  Company Number: JP-AVENTIS-200711611JP

PATIENT
  Age: 12 Year
  Sex: Female
  Weight: 40 kg

DRUGS (3)
  1. ALLEGRA [Suspect]
     Route: 048
     Dates: start: 20070528, end: 20070530
  2. DEPAKENE                           /00228502/ [Concomitant]
     Indication: EPILEPSY
     Route: 048
     Dates: start: 20070218
  3. PHENOBAL                           /00023201/ [Concomitant]
     Indication: EPILEPSY
     Route: 048
     Dates: start: 20061117

REACTIONS (3)
  - ALTERED STATE OF CONSCIOUSNESS [None]
  - DISORIENTATION [None]
  - TONIC CONVULSION [None]
